FAERS Safety Report 8451154-1 (Version None)
Quarter: 2012Q2

REPORT INFORMATION
  Report Type: 
  Country: None (occurrence: None)
  Receive Date: 20120620
  Receipt Date: 20120402
  Transmission Date: 20120825
  Serious: No
  Sender: FDA-Public Use
  Company Number: US-VERTEX PHARMACEUTICALS INC.-AE-2011-002135

PATIENT
  Sex: Female
  Weight: 54.48 kg

DRUGS (8)
  1. INCIVEK [Suspect]
     Indication: HEPATITIS C
     Route: 048
     Dates: start: 20110815, end: 20111111
  2. EPOGEN [Concomitant]
  3. MULTI-VITAMIN [Concomitant]
     Route: 048
  4. RIBAVIRIN [Concomitant]
     Indication: HEPATITIS C
     Route: 048
     Dates: start: 20110815
  5. ZYRTEC [Concomitant]
  6. THYROID MEDICATION [Concomitant]
     Route: 048
  7. PEGASYS [Concomitant]
     Indication: HEPATITIS C
     Route: 058
     Dates: start: 20110815
  8. NEUPOGEN [Concomitant]

REACTIONS (8)
  - HEADACHE [None]
  - RASH [None]
  - DIARRHOEA [None]
  - NEUTROPENIA [None]
  - DEPRESSION [None]
  - GASTRIC DISORDER [None]
  - ANAEMIA [None]
  - FATIGUE [None]
